FAERS Safety Report 7308154-4 (Version None)
Quarter: 2011Q1

REPORT INFORMATION
  Report Type: 
  Country: None (occurrence: None)
  Receive Date: 20110223
  Receipt Date: 20110214
  Transmission Date: 20110831
  Serious: Yes (Other)
  Sender: FDA-Public Use
  Company Number: US-ROCHE-759173

PATIENT
  Age: 58 Year
  Sex: Female

DRUGS (1)
  1. CELLCEPT [Suspect]
     Route: 048
     Dates: start: 20080806

REACTIONS (1)
  - OSTEOARTHRITIS [None]
